FAERS Safety Report 17279044 (Version 1)
Quarter: 2020Q1

REPORT INFORMATION
  Report Type: Spontaneous
  Country: JP (occurrence: JP)
  Receive Date: 20200116
  Receipt Date: 20200116
  Transmission Date: 20200409
  Serious: Yes (Hospitalization)
  Sender: FDA-Public Use
  Company Number: JP-SA-2020SA011709

PATIENT
  Age: 41 Year
  Sex: Male

DRUGS (7)
  1. PYRAZINAMIDE. [Suspect]
     Active Substance: PYRAZINAMIDE
     Indication: LYMPH NODE TUBERCULOSIS
  2. ETHAMBUTOL [Suspect]
     Active Substance: ETHAMBUTOL HYDROCHLORIDE
     Indication: LYMPH NODE TUBERCULOSIS
  3. ETHAMBUTOL [Suspect]
     Active Substance: ETHAMBUTOL HYDROCHLORIDE
  4. RIFADIN [Suspect]
     Active Substance: RIFAMPIN
     Indication: LYMPH NODE TUBERCULOSIS
  5. LEVOFLOXACIN. [Suspect]
     Active Substance: LEVOFLOXACIN
     Indication: LYMPH NODE TUBERCULOSIS
  6. ISONIAZID. [Suspect]
     Active Substance: ISONIAZID
     Indication: LYMPH NODE TUBERCULOSIS
  7. ISONIAZID. [Suspect]
     Active Substance: ISONIAZID

REACTIONS (3)
  - Hepatic function abnormal [Unknown]
  - Pneumocystis jirovecii pneumonia [Unknown]
  - Rash [Unknown]
